FAERS Safety Report 13829098 (Version 4)
Quarter: 2017Q3

REPORT INFORMATION
  Report Type: Spontaneous
  Country: JP (occurrence: JP)
  Receive Date: 20170803
  Receipt Date: 20170823
  Transmission Date: 20171127
  Serious: Yes (Death, Hospitalization)
  Sender: FDA-Public Use
  Company Number: JP-UNITED THERAPEUTICS-UNT-2017-011491

PATIENT
  Age: 72 Year
  Sex: Female
  Weight: 51 kg

DRUGS (28)
  1. EPOPROSTENOL SODIUM. [Concomitant]
     Active Substance: EPOPROSTENOL SODIUM
     Indication: CONNECTIVE TISSUE DISORDER
  2. WARFARIN                           /00014803/ [Concomitant]
     Active Substance: WARFARIN
     Indication: PULMONARY ARTERIAL HYPERTENSION
     Dosage: UNK
     Route: 048
  3. REMODULIN [Suspect]
     Active Substance: TREPROSTINIL
     Indication: SYSTEMIC SCLERODERMA
     Dosage: 0.100 ?G/KG, CONTINUING
     Route: 058
     Dates: start: 20160118
  4. EPOPROSTENOL SODIUM. [Concomitant]
     Active Substance: EPOPROSTENOL SODIUM
     Indication: PULMONARY ARTERIAL HYPERTENSION
     Dosage: UNK
     Route: 042
     Dates: start: 201506
  5. ADCIRCA [Concomitant]
     Active Substance: TADALAFIL
     Indication: CONNECTIVE TISSUE DISORDER
  6. REMODULIN [Suspect]
     Active Substance: TREPROSTINIL
     Indication: PULMONARY ARTERIAL HYPERTENSION
     Dosage: UNK
     Route: 058
     Dates: start: 20151028
  7. REMODULIN [Suspect]
     Active Substance: TREPROSTINIL
     Indication: CONNECTIVE TISSUE DISORDER
     Dosage: 0.0158 ?G/KG, CONTINUING
     Route: 058
     Dates: start: 20151102
  8. SPIRONOLACTONE. [Concomitant]
     Active Substance: SPIRONOLACTONE
     Indication: RIGHT VENTRICULAR FAILURE
     Dosage: UNK
     Route: 048
  9. PAXIL [Concomitant]
     Active Substance: PAROXETINE HYDROCHLORIDE
     Indication: DEPRESSION
     Dosage: UNK
     Route: 048
  10. REMODULIN [Suspect]
     Active Substance: TREPROSTINIL
     Indication: SJOGREN^S SYNDROME
     Dosage: 0.120 ?G/KG, CONTINUING
     Route: 058
     Dates: start: 20160125
  11. FERROUS SULFATE. [Concomitant]
     Active Substance: FERROUS SULFATE
     Indication: IRON DEFICIENCY ANAEMIA
     Dosage: UNK
     Route: 048
  12. SODIUM RABEPRAZOLE [Concomitant]
     Active Substance: RABEPRAZOLE SODIUM
     Indication: PROPHYLAXIS
     Dosage: UNK
     Route: 048
  13. K-SUPPLY [Concomitant]
     Active Substance: POTASSIUM CHLORIDE
     Indication: HYPOKALAEMIA
     Dosage: UNK
     Route: 048
  14. ALENDRONATE SODIUM HYDRATE [Concomitant]
     Active Substance: ALENDRONATE SODIUM
     Indication: PROPHYLAXIS
     Dosage: UNK
  15. WARFARIN                           /00014803/ [Concomitant]
     Active Substance: WARFARIN
     Indication: CONNECTIVE TISSUE DISORDER
  16. ADEMPAS [Concomitant]
     Active Substance: RIOCIGUAT
     Indication: PULMONARY ARTERIAL HYPERTENSION
     Dosage: UNK
     Route: 048
     Dates: start: 20151124
  17. REMODULIN [Suspect]
     Active Substance: TREPROSTINIL
     Indication: SYSTEMIC LUPUS ERYTHEMATOSUS
     Dosage: 0.048 ?G/KG, CONTINUING
     Route: 058
     Dates: start: 20151126
  18. TRACLEER [Concomitant]
     Active Substance: BOSENTAN
     Indication: PULMONARY ARTERIAL HYPERTENSION
     Dosage: UNK
     Route: 048
     Dates: start: 201004
  19. WYPAX [Concomitant]
     Active Substance: LORAZEPAM
     Indication: DEPRESSION
     Dosage: UNK
     Route: 048
  20. LEXOTAN [Concomitant]
     Active Substance: BROMAZEPAM
     Indication: DEPRESSION
     Dosage: UNK
     Route: 048
  21. CARELOAD [Concomitant]
     Active Substance: BERAPROST SODIUM
     Indication: PULMONARY ARTERIAL HYPERTENSION
     Dosage: UNK
     Route: 048
     Dates: start: 20151121
  22. LUPRAC [Concomitant]
     Active Substance: TORSEMIDE
     Indication: RIGHT VENTRICULAR FAILURE
     Dosage: UNK
     Route: 048
  23. CARELOAD [Concomitant]
     Active Substance: BERAPROST SODIUM
     Indication: CONNECTIVE TISSUE DISORDER
  24. ADCIRCA [Concomitant]
     Active Substance: TADALAFIL
     Indication: PULMONARY ARTERIAL HYPERTENSION
     Dosage: UNK
     Route: 048
     Dates: start: 201011
  25. ADEMPAS [Concomitant]
     Active Substance: RIOCIGUAT
     Indication: CONNECTIVE TISSUE DISORDER
  26. TRACLEER [Concomitant]
     Active Substance: BOSENTAN
     Indication: CONNECTIVE TISSUE DISORDER
  27. PREDONINE [Concomitant]
     Active Substance: PREDNISOLONE
     Indication: SYSTEMIC LUPUS ERYTHEMATOSUS
     Dosage: UNK
  28. GASTROM [Concomitant]
     Active Substance: ECABET SODIUM
     Indication: PROPHYLAXIS
     Dosage: UNK
     Route: 048

REACTIONS (6)
  - Collagen disorder [Unknown]
  - Platelet count decreased [Unknown]
  - Pneumonia [Unknown]
  - Death [Fatal]
  - Renal failure [Unknown]
  - Haemorrhage [Unknown]

NARRATIVE: CASE EVENT DATE: 20170517
